FAERS Safety Report 9393863 (Version 2)
Quarter: 2013Q3

REPORT INFORMATION
  Report Type: Spontaneous
  Country: US (occurrence: US)
  Receive Date: 20130710
  Receipt Date: 20130731
  Transmission Date: 20140515
  Serious: No
  Sender: FDA-Public Use
  Company Number: US-009507513-1304USA008279

PATIENT
  Age: 65 Year
  Sex: Male
  Weight: 79.37 kg

DRUGS (6)
  1. CLARITIN-D-24 [Suspect]
     Indication: RHINORRHOEA
     Dosage: 10 MG, QD
     Route: 048
     Dates: start: 20130304, end: 20130320
  2. CLARITIN-D-24 [Suspect]
     Indication: EYE PRURITUS
  3. CLARITIN-D-24 [Suspect]
     Indication: MEDICAL OBSERVATION
  4. OMEPRAZOLE [Concomitant]
     Indication: GASTROOESOPHAGEAL REFLUX DISEASE
     Dosage: 40 MG, UNKNOWN
  5. OMEPRAZOLE [Concomitant]
     Indication: GASTROOESOPHAGEAL REFLUX DISEASE
  6. ALIGN [Concomitant]
     Indication: PRODUCT USED FOR UNKNOWN INDICATION
     Dosage: UNK, UNKNOWN

REACTIONS (3)
  - Epistaxis [Recovered/Resolved]
  - Sinus disorder [Recovered/Resolved]
  - Drug ineffective [Unknown]
